FAERS Safety Report 5207538-8 (Version None)
Quarter: 2006Q4

REPORT INFORMATION
  Report Type: 
  Country: None (occurrence: None)
  Receive Date: 20061030
  Receipt Date: 20060727
  Transmission Date: 20070319
  Serious: No
  Sender: FDA-Public Use
  Company Number: 2006CT000650

PATIENT
  Age: 49 Year
  Sex: Female
  Weight: 106.5953 kg

DRUGS (12)
  1. VENTAVIS [Suspect]
     Indication: PULMONARY HYPERTENSION
     Dosage: 5 UG; 6TO9X/DAY; INH
     Route: 055
     Dates: start: 20060629
  2. ATORVASTATIN CALCIUM [Concomitant]
  3. TRACLEER [Concomitant]
  4. LASIX [Concomitant]
  5. PREVACID [Concomitant]
  6. ZESTRIL [Concomitant]
  7. CELLCEPT [Concomitant]
  8. PREDNISONE [Concomitant]
  9. SILDENAFIL CITRATE [Concomitant]
  10. POTASSIUM CHLORIDE [Concomitant]
  11. WARFARIN SODIUM [Concomitant]
  12. OYSTER SHELL CALCIUM WITH VITAMIN D [Concomitant]

REACTIONS (3)
  - FLUSHING [None]
  - HYPERHIDROSIS [None]
  - MUSCLE SPASMS [None]
